FAERS Safety Report 13559358 (Version 1)
Quarter: 2017Q2

REPORT INFORMATION
  Report Type: Spontaneous
  Country: US (occurrence: US)
  Receive Date: 20170518
  Receipt Date: 20170518
  Transmission Date: 20170830
  Serious: No
  Sender: FDA-Public Use
  Company Number: US-SHIRE-US201710899

PATIENT
  Age: 66 Year
  Sex: Female

DRUGS (3)
  1. XIIDRA [Suspect]
     Active Substance: LIFITEGRAST
     Indication: FUCHS^ SYNDROME
     Dosage: 1 GTT (OU), 2X/DAY:BID
     Route: 047
     Dates: start: 20170509
  2. XIIDRA [Suspect]
     Active Substance: LIFITEGRAST
     Indication: CATARACT
  3. XIIDRA [Suspect]
     Active Substance: LIFITEGRAST
     Indication: DRY EYE

REACTIONS (1)
  - Therapeutic response unexpected [Not Recovered/Not Resolved]

NARRATIVE: CASE EVENT DATE: 201705
